FAERS Safety Report 12399890 (Version 1)
Quarter: 2016Q2

REPORT INFORMATION
  Report Type: Spontaneous
  Country: DK (occurrence: DK)
  Receive Date: 20160524
  Receipt Date: 20160524
  Transmission Date: 20160815
  Serious: Yes (Hospitalization)
  Sender: FDA-Public Use
  Company Number: PHHY2016DK070721

PATIENT
  Age: 36 Year
  Sex: Male

DRUGS (1)
  1. DICILLIN [Suspect]
     Active Substance: DICLOXACILLIN SODIUM
     Indication: STAPHYLOCOCCAL INFECTION
     Dosage: PG,
     Route: 048
     Dates: start: 20160416, end: 20160424

REACTIONS (3)
  - Urticaria [Unknown]
  - Lip swelling [Unknown]
  - Abdominal pain [Unknown]

NARRATIVE: CASE EVENT DATE: 20160423
